FAERS Safety Report 8732427 (Version 2)
Quarter: 2012Q4

REPORT INFORMATION
  Report Type: 
  Country: DE (occurrence: DE)
  Receive Date: 20120820
  Receipt Date: 20120829
  Transmission Date: 20130627
  Serious: Yes (Life-Threatening, Hospitalization, Congenital Anomaly, Other)
  Sender: FDA-Public Use
  Company Number: DE-PFIZER INC-2012195140

PATIENT
  Sex: Male
  Weight: 2.41 kg

DRUGS (5)
  1. RAMIPRIL [Suspect]
     Indication: HYPERTENSION
     Dosage: 2.5 mg, 1x/day
     Route: 064
  2. RAMIPRIL [Suspect]
     Dosage: 5 mg, 1x/day
     Route: 064
     Dates: end: 20120405
  3. NEBIVOLOL [Suspect]
     Indication: HYPERTENSION
     Dosage: 5 mg, 1x/day
     Route: 064
     Dates: end: 20120405
  4. LEVOTHYROXINE SODIUM [Concomitant]
     Indication: HYPOTHYROIDISM
     Dosage: 50 ug, 1x/day
     Route: 064
     Dates: end: 20120405
  5. VITAVERLAN [Concomitant]
     Indication: PROPHYLAXIS OF NEURAL TUBE DEFECT
     Dosage: 0.4 mg, 1x/day
     Route: 064
     Dates: start: 20110829, end: 20120405

REACTIONS (7)
  - Maternal exposure timing unspecified [Not Recovered/Not Resolved]
  - Cranial sutures widening [Unknown]
  - Neonatal anuria [Recovered/Resolved]
  - Renal failure acute [Recovered/Resolved]
  - Renal aplasia [Unknown]
  - Extremity contracture [Not Recovered/Not Resolved]
  - Small for dates baby [Unknown]
